FAERS Safety Report 16587722 (Version 2)
Quarter: 2019Q3

REPORT INFORMATION
  Report Type: Report from Study
  Country: CA (occurrence: CA)
  Receive Date: 20190717
  Receipt Date: 20190723
  Transmission Date: 20191004
  Serious: Yes (Hospitalization, Other)
  Sender: FDA-Public Use
  Company Number: CA-GLAXOSMITHKLINE-CA2019AMR125660

PATIENT
  Age: 44 Year
  Sex: Female

DRUGS (1)
  1. MEPOLIZUMAB [Suspect]
     Active Substance: MEPOLIZUMAB
     Indication: ASTHMA
     Dosage: 100 MG, Z (MONTHLY)
     Route: 042
     Dates: start: 20181003

REACTIONS (4)
  - Dyspnoea [Recovering/Resolving]
  - Kidney infection [Unknown]
  - Infection [Unknown]
  - Asthma [Unknown]

NARRATIVE: CASE EVENT DATE: 20190710
